FAERS Safety Report 12843570 (Version 1)
Quarter: 2016Q4

REPORT INFORMATION
  Report Type: Spontaneous
  Country: LV (occurrence: LV)
  Receive Date: 20161013
  Receipt Date: 20161013
  Transmission Date: 20170207
  Serious: Yes (Life-Threatening)
  Sender: FDA-Public Use
  Company Number: LV-TEVA-698370ACC

PATIENT
  Age: 45 Year
  Sex: Female
  Weight: 87 kg

DRUGS (5)
  1. FINLEPSIN 200 MG [Suspect]
     Active Substance: CARBAMAZEPINE
     Indication: TRIGEMINAL NEURITIS
     Dosage: 200 MILLIGRAM DAILY;
     Route: 048
     Dates: start: 20160913, end: 20160915
  2. LORISTA 25MG [Concomitant]
     Dosage: DOSAGE AND FREQUENCY IS NOT KNOWN
     Route: 048
  3. L-THYROXIN [Concomitant]
     Active Substance: LEVOTHYROXINE SODIUM
     Dosage: FREQUENCY OF USE IS NOT KNOWN
     Route: 048
  4. DEXAMETHASONUM [Concomitant]
     Active Substance: DEXAMETHASONE
     Dosage: DOSAGE AND FREQUENCY IS NOT KNOWN
  5. ALPRAZOLAM 1 MG [Concomitant]
     Dosage: DOSAGE AND USAGE OF FREQUENCY NOT KNOWN
     Route: 048

REACTIONS (12)
  - Tremor [Recovering/Resolving]
  - Burning sensation [Recovering/Resolving]
  - Headache [Recovering/Resolving]
  - Discomfort [Recovering/Resolving]
  - Dyspnoea [Recovering/Resolving]
  - Anxiety [Recovering/Resolving]
  - Thirst [Recovering/Resolving]
  - Arthralgia [Recovering/Resolving]
  - Constipation [Recovering/Resolving]
  - Hyperaesthesia [Recovering/Resolving]
  - Pyrexia [Recovering/Resolving]
  - Dizziness [Recovering/Resolving]

NARRATIVE: CASE EVENT DATE: 20160913
